FAERS Safety Report 4706978-0 (Version None)
Quarter: 2005Q3

REPORT INFORMATION
  Report Type: 
  Country: None (occurrence: None)
  Receive Date: 20050701
  Receipt Date: 20050622
  Transmission Date: 20060218
  Serious: Yes (Hospitalization)
  Sender: FDA-Public Use
  Company Number: A-US2005-10039

PATIENT
  Age: 78 Year
  Sex: Male

DRUGS (9)
  1. TRACLEER [Suspect]
     Indication: PULMONARY HYPERTENSION
     Dosage: 62.5 MG, BID, ORAL
     Route: 048
     Dates: start: 20050601, end: 20050617
  2. VIAGRA [Concomitant]
  3. DILTIAZEM [Concomitant]
  4. CLONIDINE [Concomitant]
  5. HYDRALAZINE HCL [Concomitant]
  6. ISORDIL [Concomitant]
  7. METOLAZONE [Concomitant]
  8. DEMADEX [Concomitant]
  9. GLUCOTROL [Concomitant]

REACTIONS (2)
  - ANAEMIA [None]
  - PULMONARY OEDEMA [None]
